FAERS Safety Report 10758255 (Version 1)
Quarter: 2015Q1

REPORT INFORMATION
  Report Type: Spontaneous
  Country: US (occurrence: None)
  Receive Date: 20150202
  Receipt Date: 20150202
  Transmission Date: 20150721
  Serious: No
  Sender: FDA-Public Use
  Company Number: None

PATIENT
  Age: 83 Year
  Sex: Male
  Weight: 66.4 kg

DRUGS (1)
  1. DOXYCYCLINE. [Suspect]
     Active Substance: DOXYCYCLINE
     Dosage: MG, BID, PO
     Route: 048
     Dates: start: 20150125, end: 20150201

REACTIONS (2)
  - Rash pruritic [None]
  - Urticaria [None]

NARRATIVE: CASE EVENT DATE: 20150127
